FAERS Safety Report 20925964 (Version 1)
Quarter: 2022Q2

REPORT INFORMATION
  Report Type: Spontaneous
  Country: US (occurrence: US)
  Receive Date: 20220607
  Receipt Date: 20220607
  Transmission Date: 20220720
  Serious: No
  Sender: FDA-Public Use
  Company Number: US-MYLANLABS-2022M1037957

PATIENT
  Sex: Female

DRUGS (2)
  1. YUPELRI [Suspect]
     Active Substance: REVEFENACIN
     Indication: Dyspnoea
     Dosage: 175MICROGRAM/3 MILLILITRE, QD
     Route: 055
     Dates: start: 202203
  2. YUPELRI [Suspect]
     Active Substance: REVEFENACIN
     Dosage: UNK UNK, 3XW, TAKING THIS PROBABLY 3X WEEK
     Route: 055
     Dates: start: 202203, end: 2022

REACTIONS (2)
  - Back pain [Unknown]
  - Inappropriate schedule of product administration [Unknown]

NARRATIVE: CASE EVENT DATE: 20220101
